FAERS Safety Report 19165332 (Version 1)
Quarter: 2021Q2

REPORT INFORMATION
  Report Type: Spontaneous
  Country: JP (occurrence: JP)
  Receive Date: 20210421
  Receipt Date: 20210421
  Transmission Date: 20210717
  Serious: Yes (Life-Threatening, Hospitalization, Other)
  Sender: FDA-Public Use
  Company Number: JP-PURDUE-USA-2021-0248046

PATIENT
  Age: 87 Year
  Sex: Female
  Weight: 41 kg

DRUGS (2)
  1. THEOPHYLLINE (040086, 087571 RHODES) [Suspect]
     Active Substance: THEOPHYLLINE ANHYDROUS
     Indication: ASTHMA
     Dosage: 400 MG, UNK
     Route: 065
  2. CILOSTAZOL. [Interacting]
     Active Substance: CILOSTAZOL
     Indication: LACUNAR INFARCTION
     Dosage: 200 MG, UNK
     Route: 065

REACTIONS (16)
  - Generalised tonic-clonic seizure [Recovered/Resolved]
  - Diplegia [Unknown]
  - Fibrin D dimer increased [Unknown]
  - Electroencephalogram abnormal [Recovered/Resolved]
  - Hemiplegia [Recovered/Resolved]
  - Central nervous system lesion [Unknown]
  - Dyslalia [Recovered/Resolved]
  - Drug interaction [Recovered/Resolved]
  - Lacunar stroke [Unknown]
  - Facial paresis [Unknown]
  - Aphasia [Recovered/Resolved]
  - Adverse drug reaction [Unknown]
  - Altered state of consciousness [Recovered/Resolved]
  - Blood urea increased [Unknown]
  - Status epilepticus [Recovered/Resolved]
  - Fall [Unknown]

NARRATIVE: CASE EVENT DATE: 201911
